FAERS Safety Report 10474590 (Version 1)
Quarter: 2014Q3

REPORT INFORMATION
  Report Type: Spontaneous
  Country: JP (occurrence: JP)
  Receive Date: 20140924
  Receipt Date: 20140924
  Transmission Date: 20150326
  Serious: Yes (Life-Threatening, Disabling)
  Sender: FDA-Public Use
  Company Number: JP-BRISTOL-MYERS SQUIBB COMPANY-21423009

PATIENT
  Age: 74 Year
  Sex: Female
  Weight: 54 kg

DRUGS (23)
  1. DIGOXIN. [Concomitant]
     Active Substance: DIGOXIN
  2. HALFDIGOXIN [Concomitant]
     Active Substance: DIGOXIN
  3. SYMMETREL [Concomitant]
     Active Substance: AMANTADINE HYDROCHLORIDE
  4. CEFAZOLINE [Concomitant]
     Active Substance: CEFAZOLIN SODIUM
  5. VITAMIN B COMPLEX [Concomitant]
     Active Substance: CYANOCOBALAMIN\DEXPANTHENOL\NIACINAMIDE\PYRIDOXINE HYDROCHLORIDE\RIBOFLAVIN 5^-PHOSPHATE SODIUM\THIAMINE HYDROCHLORIDE\VITAMIN B COMPLEX
  6. PHYSIO 140 [Concomitant]
  7. SELBEX [Concomitant]
     Active Substance: TEPRENONE
  8. DYDRENE [Concomitant]
     Active Substance: NITROGLYCERIN
  9. NITROGLYCERIN. [Concomitant]
     Active Substance: NITROGLYCERIN
  10. CEFDITOREN PIVOXIL. [Concomitant]
     Active Substance: CEFDITOREN PIVOXIL
  11. TEPRENONE [Concomitant]
     Active Substance: TEPRENONE
  12. ZOSYN [Concomitant]
     Active Substance: PIPERACILLIN SODIUM\TAZOBACTAM SODIUM
  13. SPIRONOLACTONE. [Concomitant]
     Active Substance: SPIRONOLACTONE
  14. SOLDEM 3A [Concomitant]
     Active Substance: CARBOHYDRATES\POTASSIUM CHLORIDE\SODIUM CHLORIDE\SODIUM LACTATE
  15. VITACIMIN [Concomitant]
  16. HARTMANN SOLUTION [Concomitant]
  17. ALDACTONE [Concomitant]
     Active Substance: SPIRONOLACTONE
  18. PRIMPERAN [Concomitant]
     Active Substance: METOCLOPRAMIDE HYDROCHLORIDE
  19. HEPARIN SODIUM. [Suspect]
     Active Substance: HEPARIN SODIUM
     Dosage: 1 DF= 1000 UNIT NOS?LAST DOSE ON 19AUG14
     Dates: start: 20140817
  20. THYRADIN S [Concomitant]
     Active Substance: LEVOTHYROXINE SODIUM
  21. SODIUM CHLORIDE. [Concomitant]
     Active Substance: SODIUM CHLORIDE
  22. ELIQUIS [Suspect]
     Active Substance: APIXABAN
     Indication: THROMBOSIS PROPHYLAXIS
     Route: 048
     Dates: end: 20140825
  23. MAGMITT [Concomitant]
     Active Substance: MAGNESIUM OXIDE

REACTIONS (4)
  - Haemorrhage intracranial [Recovering/Resolving]
  - Hydrocephalus [Recovering/Resolving]
  - Pyrexia [Unknown]
  - Clonus [Unknown]

NARRATIVE: CASE EVENT DATE: 2014
